FAERS Safety Report 10537517 (Version 1)
Quarter: 2014Q4

REPORT INFORMATION
  Report Type: Spontaneous
  Country: US (occurrence: None)
  Receive Date: 20141022
  Receipt Date: 20141022
  Transmission Date: 20150529
  Serious: No
  Sender: FDA-Public Use
  Company Number: None

PATIENT
  Age: 58 Year
  Sex: Female
  Weight: 58.06 kg

DRUGS (1)
  1. LIPITOR [Suspect]
     Active Substance: ATORVASTATIN CALCIUM
     Indication: BLOOD CHOLESTEROL INCREASED
     Dosage: ONE ONCE DAILY TAKEN BY MOUTH
     Route: 048

REACTIONS (6)
  - Drug ineffective [None]
  - Tinnitus [None]
  - Quality of life decreased [None]
  - Blood cholesterol increased [None]
  - Hypoacusis [None]
  - Depression [None]

NARRATIVE: CASE EVENT DATE: 20091001
